FAERS Safety Report 7444890-7 (Version None)
Quarter: 2011Q2

REPORT INFORMATION
  Report Type: 
  Country: None (occurrence: None)
  Receive Date: 20110429
  Receipt Date: 20110418
  Transmission Date: 20111010
  Serious: Yes (Hospitalization)
  Sender: FDA-Public Use
  Company Number: PHFR2011GB01980

PATIENT
  Sex: Male

DRUGS (1)
  1. CLOZARIL [Suspect]
     Indication: SCHIZOPHRENIA
     Dosage: 500 MG, QD
     Route: 048
     Dates: start: 20080508

REACTIONS (4)
  - FAECALOMA [None]
  - GALLBLADDER PERFORATION [None]
  - SALIVARY HYPERSECRETION [None]
  - PLATELET COUNT INCREASED [None]
